FAERS Safety Report 10513086 (Version 4)
Quarter: 2015Q1

REPORT INFORMATION
  Report Type: Spontaneous
  Country: AR (occurrence: AR)
  Receive Date: 20141013
  Receipt Date: 20150121
  Transmission Date: 20150720
  Serious: Yes (Other)
  Sender: FDA-Public Use
  Company Number: AR-PFIZER INC-2014272156

PATIENT
  Age: 52 Year
  Sex: Female

DRUGS (5)
  1. METHOTREXATE [Suspect]
     Active Substance: METHOTREXATE
     Dosage: UNK
     Dates: end: 201408
  2. PREGABALIN. [Suspect]
     Active Substance: PREGABALIN
     Dosage: MULTIPLE DOSES
  3. IMPREL [Suspect]
     Active Substance: IMIPRAMINE HYDROCHLORIDE
     Dosage: MULTIPLE DOSES
     Dates: start: 201406
  4. ENBREL [Suspect]
     Active Substance: ETANERCEPT
     Indication: RHEUMATOID ARTHRITIS
     Dosage: 50 MG, WEEKLY
     Dates: start: 20130507, end: 201410
  5. LEVOCARNITINE. [Suspect]
     Active Substance: LEVOCARNITINE
     Dosage: MULTIPLE DOSES
     Dates: start: 201406

REACTIONS (12)
  - Visual impairment [Not Recovered/Not Resolved]
  - Ocular hyperaemia [Not Recovered/Not Resolved]
  - Nervousness [Not Recovered/Not Resolved]
  - Acne [Not Recovered/Not Resolved]
  - Mental disorder [Unknown]
  - Polyneuropathy [Not Recovered/Not Resolved]
  - Glaucoma [Not Recovered/Not Resolved]
  - Migraine [Not Recovered/Not Resolved]
  - Rash [Not Recovered/Not Resolved]
  - Pain [Not Recovered/Not Resolved]
  - Fatigue [Not Recovered/Not Resolved]
  - Hypersensitivity [Not Recovered/Not Resolved]

NARRATIVE: CASE EVENT DATE: 2014
